FAERS Safety Report 9386821 (Version 1)
Quarter: 2013Q3

REPORT INFORMATION
  Report Type: Spontaneous
  Country: US (occurrence: US)
  Receive Date: 20130708
  Receipt Date: 20130708
  Transmission Date: 20140515
  Serious: No
  Sender: FDA-Public Use
  Company Number: US-PFIZER INC-2013198337

PATIENT
  Sex: Male

DRUGS (2)
  1. SUTENT [Suspect]
     Indication: THYROID CANCER METASTATIC
     Dosage: 50 MG, 1X/DAY, 2 WEEKS ON, 1 WEEK OFF
  2. LEVOTHYROXINE [Concomitant]
     Dosage: UNK

REACTIONS (5)
  - Off label use [Unknown]
  - Blister [Unknown]
  - Pain [Unknown]
  - Yellow skin [Unknown]
  - Drug dose omission [Unknown]
